FAERS Safety Report 13674120 (Version 3)
Quarter: 2017Q3

REPORT INFORMATION
  Report Type: Spontaneous
  Country: US (occurrence: US)
  Receive Date: 20170621
  Receipt Date: 20170712
  Transmission Date: 20171127
  Serious: Yes (Other)
  Sender: FDA-Public Use
  Company Number: US-AUROBINDO-AUR-APL-2017-35491

PATIENT
  Age: 64 Year
  Sex: Male

DRUGS (1)
  1. AMPICILLIN 2 G [Suspect]
     Active Substance: AMPICILLIN
     Indication: OSTEOMYELITIS
     Dosage: 2 G, UNK
     Route: 042

REACTIONS (1)
  - Tubulointerstitial nephritis [Unknown]
